FAERS Safety Report 16765966 (Version 2)
Quarter: 2019Q3

REPORT INFORMATION
  Report Type: Spontaneous
  Country: IN (occurrence: IN)
  Receive Date: 20190903
  Receipt Date: 20190920
  Transmission Date: 20191005
  Serious: Yes (Hospitalization, Other)
  Sender: FDA-Public Use
  Company Number: IN-ACCORD-153580

PATIENT
  Age: 6 Year
  Sex: Female

DRUGS (2)
  1. METHOTREXATE. [Suspect]
     Active Substance: METHOTREXATE
     Indication: DERMATOMYOSITIS
     Route: 058
  2. PREDNISOLONE. [Suspect]
     Active Substance: PREDNISOLONE
     Indication: DERMATOMYOSITIS
     Dosage: HIGH-DOSE
     Route: 048

REACTIONS (5)
  - Cytomegalovirus infection [Recovered/Resolved]
  - Pneumonia klebsiella [Unknown]
  - Cytomegalovirus colitis [Recovered/Resolved]
  - Large intestine perforation [Recovered/Resolved]
  - Lymphopenia [Recovered/Resolved]
